FAERS Safety Report 12979664 (Version 1)
Quarter: 2016Q4

REPORT INFORMATION
  Report Type: Spontaneous
  Country: FR (occurrence: FR)
  Receive Date: 20161128
  Receipt Date: 20161128
  Transmission Date: 20170207
  Serious: Yes (Other)
  Sender: FDA-Public Use
  Company Number: FR-SA-2016SA211717

PATIENT
  Age: 81 Year
  Sex: Male

DRUGS (8)
  1. LOVENOX [Suspect]
     Active Substance: ENOXAPARIN SODIUM
     Route: 051
     Dates: start: 20160706, end: 20161006
  2. HYTACAND [Suspect]
     Active Substance: CANDESARTAN CILEXETIL\HYDROCHLOROTHIAZIDE
     Dosage: HYTACAND WAS MENTIONED AS  8MG/12.5MG
     Route: 048
     Dates: start: 20160703, end: 20161006
  3. ZAMUDOL [Suspect]
     Active Substance: TRAMADOL HYDROCHLORIDE
     Route: 048
     Dates: start: 20160626, end: 20160928
  4. OROZAMUDOL [Suspect]
     Active Substance: TRAMADOL
     Dosage: FRQUENCY:8 DAYS
     Route: 048
     Dates: start: 20160928, end: 20161007
  5. GAVISCON [Concomitant]
     Active Substance: ALUMINUM HYDROXIDE\MAGNESIUM CARBONATE
     Route: 065
  6. FENOFIBRATE. [Suspect]
     Active Substance: FENOFIBRATE
     Route: 048
     Dates: start: 20160702, end: 20161006
  7. DUPHALAC [Concomitant]
     Active Substance: LACTULOSE
     Route: 065
  8. XATRAL [Suspect]
     Active Substance: ALFUZOSIN
     Route: 048
     Dates: start: 20160727, end: 20161006

REACTIONS (2)
  - Hepatitis [Recovering/Resolving]
  - Eosinophilia [Not Recovered/Not Resolved]

NARRATIVE: CASE EVENT DATE: 20160927
